FAERS Safety Report 22369358 (Version 1)
Quarter: 2023Q2

REPORT INFORMATION
  Report Type: Spontaneous
  Country: GB (occurrence: GB)
  Receive Date: 20230526
  Receipt Date: 20230526
  Transmission Date: 20230722
  Serious: Yes (Death, Congenital Anomaly, Other)
  Sender: FDA-Public Use
  Company Number: GB-NOVITIUMPHARMA-2023GBNVP00765

PATIENT

DRUGS (1)
  1. ACETAZOLAMIDE [Suspect]
     Active Substance: ACETAZOLAMIDE
     Indication: Product used for unknown indication

REACTIONS (2)
  - Volvulus of small bowel [Fatal]
  - Foetal exposure during pregnancy [Unknown]
